FAERS Safety Report 4282996-4 (Version None)
Quarter: 2004Q1

REPORT INFORMATION
  Report Type: 
  Country: None (occurrence: None)
  Receive Date: 20040129
  Receipt Date: 20040119
  Transmission Date: 20041129
  Serious: Yes (Other)
  Sender: FDA-Public Use
  Company Number: US-JNJFOC-20040103519

PATIENT
  Age: 82 Year
  Sex: Female

DRUGS (2)
  1. DURAGESIC [Suspect]
     Indication: PAIN
     Dosage: 25 UG/HR, 1 IN 72 HOUR
     Dates: start: 20040117, end: 20040119
  2. ZOLOFT [Concomitant]

REACTIONS (3)
  - BLOOD PRESSURE DECREASED [None]
  - COLD SWEAT [None]
  - NAUSEA [None]
